FAERS Safety Report 7506766-6 (Version None)
Quarter: 2011Q2

REPORT INFORMATION
  Report Type: 
  Country: None (occurrence: None)
  Receive Date: 20110526
  Receipt Date: 20110523
  Transmission Date: 20111010
  Serious: Yes (Other)
  Sender: FDA-Public Use
  Company Number: US-PFIZER INC-2010133125

PATIENT
  Sex: Male

DRUGS (4)
  1. TRAMADOL [Concomitant]
     Indication: HIP FRACTURE
     Dosage: UNK
     Dates: start: 20061101
  2. CHANTIX [Suspect]
     Indication: SMOKING CESSATION THERAPY
     Dosage: 1 MG
     Dates: start: 20081103, end: 20081122
  3. TRAMADOL [Concomitant]
     Indication: STAPHYLOCOCCAL INFECTION
  4. TRAMADOL [Concomitant]
     Indication: TOOTH EXTRACTION

REACTIONS (4)
  - SUICIDE ATTEMPT [None]
  - ANXIETY [None]
  - LOSS OF CONSCIOUSNESS [None]
  - DEPRESSION [None]
